FAERS Safety Report 9161244 (Version 1)
Quarter: 2013Q1

REPORT INFORMATION
  Report Type: Spontaneous
  Country: US (occurrence: US)
  Receive Date: 20130313
  Receipt Date: 20130313
  Transmission Date: 20140127
  Serious: No
  Sender: FDA-Public Use
  Company Number: US-009507513-2012SP028114

PATIENT
  Age: 51 None
  Sex: Female
  Weight: 58.96 kg

DRUGS (4)
  1. CLARITIN-D 24 HOUR [Suspect]
     Indication: EYE PRURITUS
     Dosage: 10 MG, ONCE
     Route: 048
     Dates: start: 20120327
  2. CLARITIN-D 24 HOUR [Suspect]
     Indication: LACRIMATION INCREASED
  3. CLARITIN-D 24 HOUR [Suspect]
     Indication: SNEEZING
  4. CLARITIN-D 24 HOUR [Suspect]
     Indication: MEDICAL OBSERVATION

REACTIONS (10)
  - Incoherent [Recovered/Resolved]
  - Heart rate increased [Recovered/Resolved]
  - Feeling abnormal [Recovered/Resolved]
  - Feeling jittery [Not Recovered/Not Resolved]
  - Tremor [Not Recovered/Not Resolved]
  - Malaise [Not Recovered/Not Resolved]
  - Dry mouth [Not Recovered/Not Resolved]
  - Drug effect increased [Not Recovered/Not Resolved]
  - Dizziness [Not Recovered/Not Resolved]
  - Insomnia [Recovered/Resolved]
